FAERS Safety Report 10092518 (Version 1)
Quarter: 2014Q2

REPORT INFORMATION
  Report Type: Spontaneous
  Country: US (occurrence: US)
  Receive Date: 20140421
  Receipt Date: 20140421
  Transmission Date: 20141212
  Serious: No
  Sender: FDA-Public Use
  Company Number: US-SANOFI-AVENTIS-2013SA040708

PATIENT
  Age: 71 Year
  Sex: Male
  Weight: 78.01 kg

DRUGS (6)
  1. ALLEGRA [Suspect]
     Indication: HYPERSENSITIVITY
     Dosage: TAKEN FROM:WHILE BACK
     Route: 048
     Dates: end: 20130416
  2. GLYBURIDE [Concomitant]
  3. LACTOSE [Concomitant]
  4. METFORMIN [Concomitant]
  5. LISINOPRIL [Concomitant]
  6. ACARBOSE [Concomitant]

REACTIONS (1)
  - Drug ineffective [Unknown]
